FAERS Safety Report 13246571 (Version 1)
Quarter: 2017Q1

REPORT INFORMATION
  Report Type: Spontaneous
  Country: US (occurrence: US)
  Receive Date: 20170217
  Receipt Date: 20170217
  Transmission Date: 20170428
  Serious: Yes (Hospitalization, Other)
  Sender: FDA-Public Use
  Company Number: US-APOTEX-2017AP006528

PATIENT
  Age: 23 Year
  Sex: Male

DRUGS (7)
  1. VANCOMYCIN HCL [Suspect]
     Active Substance: VANCOMYCIN HYDROCHLORIDE
     Indication: DYSPNOEA
     Dosage: 1 G (9.7 MG/KG), T.I.W(EVERY 8 HOURS)
     Route: 065
  2. VANCOMYCIN HCL [Suspect]
     Active Substance: VANCOMYCIN HYDROCHLORIDE
     Indication: BRONCHIAL SECRETION RETENTION
     Dosage: 4 G, (RECEIVED 4 G DURING THE FIRST 24 H OF THERAPY)
     Route: 065
  3. PIPERACILLIN W/TAZOBACTAM          /01173601/ [Suspect]
     Active Substance: PIPERACILLIN SODIUM\TAZOBACTAM SODIUM
     Indication: BRONCHIAL SECRETION RETENTION
  4. PIPERACILLIN W/TAZOBACTAM /01173601/ [Suspect]
     Active Substance: PIPERACILLIN SODIUM\TAZOBACTAM SODIUM
     Indication: DYSPNOEA
     Dosage: UNK
     Route: 065
  5. MOXIFLOXACIN. [Concomitant]
     Active Substance: MOXIFLOXACIN
     Indication: BRONCHIAL SECRETION RETENTION
  6. LISINOPRIL. [Suspect]
     Active Substance: LISINOPRIL
     Indication: CARDIOMYOPATHY
     Dosage: UNK
     Route: 065
  7. MOXIFLOXACIN. [Concomitant]
     Active Substance: MOXIFLOXACIN
     Indication: DYSPNOEA
     Route: 065

REACTIONS (1)
  - Renal tubular necrosis [Recovered/Resolved]
